FAERS Safety Report 7108717-5 (Version None)
Quarter: 2010Q4

REPORT INFORMATION
  Report Type: 
  Country: None (occurrence: None)
  Receive Date: 20101117
  Receipt Date: 20100812
  Transmission Date: 20110411
  Serious: Yes (Death)
  Sender: FDA-Public Use
  Company Number: CO-SANOFI-AVENTIS-2010SA027680

PATIENT
  Age: 52 Year
  Sex: Male
  Weight: 75 kg

DRUGS (7)
  1. CLEXANE [Suspect]
     Indication: ACUTE CORONARY SYNDROME
     Dates: start: 20100510, end: 20100510
  2. CLEXANE [Suspect]
     Dates: start: 20100510, end: 20100510
  3. ASA [Suspect]
     Indication: ACUTE CORONARY SYNDROME
     Route: 048
     Dates: start: 20100510, end: 20100510
  4. PLAVIX [Concomitant]
     Indication: ACUTE CORONARY SYNDROME
     Route: 048
     Dates: start: 20100510, end: 20100510
  5. METOPROLOL [Concomitant]
  6. ENALAPRIL MALEATE [Concomitant]
  7. GLYCERYL TRINITRATE [Concomitant]

REACTIONS (1)
  - THROMBOSIS IN DEVICE [None]
